FAERS Safety Report 4633029-9 (Version None)
Quarter: 2005Q2

REPORT INFORMATION
  Report Type: 
  Country: None (occurrence: None)
  Receive Date: 20050325
  Receipt Date: 20050201
  Transmission Date: 20051028
  Serious: No
  Sender: FDA-Public Use
  Company Number: USA031151547

PATIENT
  Age: 53 Year
  Sex: Female
  Weight: 55 kg

DRUGS (11)
  1. EVISTA [Suspect]
     Indication: OSTEOPOROSIS
     Dosage: 60 MG DAY
     Dates: start: 20021001
  2. FORTEO [Suspect]
     Dates: start: 20050101
  3. MIACALCIN [Concomitant]
  4. NASOCORT (BUDESONIDE) [Concomitant]
  5. VERAPAMIL [Concomitant]
  6. ATENOLOL [Concomitant]
  7. VASOTEC [Concomitant]
  8. CALTRATE (CALCIUM CARBONATE) [Concomitant]
  9. MULTI-VITAMIN [Concomitant]
  10. NORPACE [Concomitant]
  11. CLARINEX [Concomitant]

REACTIONS (4)
  - BACK PAIN [None]
  - BONE DENSITY DECREASED [None]
  - CONSTIPATION [None]
  - WEIGHT INCREASED [None]
